FAERS Safety Report 14663112 (Version 1)
Quarter: 2018Q1

REPORT INFORMATION
  Report Type: Spontaneous
  Country: US (occurrence: US)
  Receive Date: 20180319
  Receipt Date: 20180319
  Transmission Date: 20180509
  Serious: No
  Sender: FDA-Public Use
  Company Number: None

PATIENT
  Age: 64 Year
  Sex: Male

DRUGS (1)
  1. H.P. ACTHAR [Suspect]
     Active Substance: CORTICOTROPIN

REACTIONS (4)
  - Flushing [None]
  - Hypertension [None]
  - Headache [None]
  - Weight increased [None]

NARRATIVE: CASE EVENT DATE: 20180319
